FAERS Safety Report 21383606 (Version 1)
Quarter: 2022Q3

REPORT INFORMATION
  Report Type: Spontaneous
  Country: US (occurrence: US)
  Receive Date: 20220927
  Receipt Date: 20220927
  Transmission Date: 20221027
  Serious: Yes (Hospitalization)
  Sender: FDA-Public Use
  Company Number: US-GBT-016590

PATIENT
  Sex: Female

DRUGS (1)
  1. OXBRYTA [Suspect]
     Active Substance: VOXELOTOR
     Indication: Product used for unknown indication
     Route: 065

REACTIONS (6)
  - Dental operation [Unknown]
  - Malaise [Unknown]
  - Alveolar osteitis [Unknown]
  - Coagulopathy [Unknown]
  - Wrong product administered [Unknown]
  - Product dispensing error [Unknown]
